FAERS Safety Report 7829104-8 (Version None)
Quarter: 2011Q4

REPORT INFORMATION
  Report Type: 
  Country: None (occurrence: None)
  Receive Date: 20111020
  Receipt Date: 20111011
  Transmission Date: 20120403
  Serious: Yes (Other)
  Sender: FDA-Public Use
  Company Number: US-ELI_LILLY_AND_COMPANY-US201109003310

PATIENT
  Sex: Female
  Weight: 76 kg

DRUGS (9)
  1. LYRICA [Concomitant]
     Dosage: 75 MG, BID
  2. DECADRON [Concomitant]
     Dosage: 4 MG, BID
     Route: 048
     Dates: start: 20110814, end: 20110926
  3. FENTANYL [Concomitant]
     Dosage: 75 UG, EVERY 72 HOURS
  4. ALIMTA [Suspect]
     Indication: CERVIX CARCINOMA
     Dosage: 708 MG, EVERY 21 DAYS
     Route: 042
     Dates: start: 20110815, end: 20110926
  5. VITAMIN B-12 [Concomitant]
     Dosage: 1000 MG, UNK
     Route: 030
     Dates: start: 20110808
  6. BEVACIZUMAB [Concomitant]
  7. PERCOCET [Concomitant]
     Indication: BACK PAIN
     Dosage: UNK UNK, PRN
  8. CARBOPLATIN [Concomitant]
  9. FOLIC ACID [Concomitant]
     Dosage: 500 MG, UNKNOWN
     Route: 048
     Dates: start: 20110808

REACTIONS (1)
  - ANAPHYLACTIC REACTION [None]
